FAERS Safety Report 17017642 (Version 1)
Quarter: 2019Q4

REPORT INFORMATION
  Report Type: Spontaneous
  Country: US (occurrence: US)
  Receive Date: 20191006
  Receipt Date: 20191006
  Transmission Date: 20200122
  Serious: No
  Sender: FDA-Public Use
  Company Number: None

PATIENT
  Age: 30 Year
  Sex: Female

DRUGS (1)
  1. HUMIRA [Suspect]
     Active Substance: ADALIMUMAB
     Indication: CROHN^S DISEASE
     Dosage: ?          OTHER DOSE:40MG/0.4ML;OTHER FREQUENCY:UNKNOWN;?
     Route: 058
     Dates: start: 20161226

REACTIONS (3)
  - Condition aggravated [None]
  - Skin plaque [None]
  - Drug ineffective [None]

NARRATIVE: CASE EVENT DATE: 20181002
